FAERS Safety Report 7004583-7 (Version None)
Quarter: 2010Q3

REPORT INFORMATION
  Report Type: 
  Country: None (occurrence: None)
  Receive Date: 20100921
  Receipt Date: 20100914
  Transmission Date: 20110219
  Serious: Yes (Other)
  Sender: FDA-Public Use
  Company Number: US-ASTRAZENECA-2007UW08484

PATIENT
  Age: 39 Year
  Sex: Female
  Weight: 111.1 kg

DRUGS (46)
  1. SEROQUEL [Suspect]
     Indication: INSOMNIA
     Dosage: 25-600 MG
     Route: 048
     Dates: start: 20030114, end: 20081119
  2. SEROQUEL [Suspect]
     Indication: SLEEP DISORDER
     Dosage: 25-600 MG
     Route: 048
     Dates: start: 20030114, end: 20081119
  3. SEROQUEL [Suspect]
     Indication: AFFECTIVE DISORDER
     Dosage: 25-600 MG
     Route: 048
     Dates: start: 20030114, end: 20081119
  4. SEROQUEL [Suspect]
     Indication: ANXIETY
     Dosage: 25-600 MG
     Route: 048
     Dates: start: 20030114, end: 20081119
  5. SEROQUEL [Suspect]
     Dosage: 50-600 MG
     Route: 048
     Dates: start: 20030206
  6. SEROQUEL [Suspect]
     Dosage: 50-600 MG
     Route: 048
     Dates: start: 20030206
  7. SEROQUEL [Suspect]
     Dosage: 50-600 MG
     Route: 048
     Dates: start: 20030206
  8. SEROQUEL [Suspect]
     Dosage: 50-600 MG
     Route: 048
     Dates: start: 20030206
  9. SEROQUEL [Suspect]
     Route: 048
     Dates: start: 20040101
  10. SEROQUEL [Suspect]
     Route: 048
     Dates: start: 20040101
  11. SEROQUEL [Suspect]
     Route: 048
     Dates: start: 20040101
  12. SEROQUEL [Suspect]
     Route: 048
     Dates: start: 20040101
  13. SEROQUEL [Suspect]
     Dosage: 200-600 MG
     Route: 048
     Dates: start: 20061108
  14. SEROQUEL [Suspect]
     Dosage: 200-600 MG
     Route: 048
     Dates: start: 20061108
  15. SEROQUEL [Suspect]
     Dosage: 200-600 MG
     Route: 048
     Dates: start: 20061108
  16. SEROQUEL [Suspect]
     Dosage: 200-600 MG
     Route: 048
     Dates: start: 20061108
  17. SEROQUEL [Suspect]
     Dosage: 300MG, 100MG
     Route: 048
     Dates: start: 20071101
  18. SEROQUEL [Suspect]
     Dosage: 300MG, 100MG
     Route: 048
     Dates: start: 20071101
  19. SEROQUEL [Suspect]
     Dosage: 300MG, 100MG
     Route: 048
     Dates: start: 20071101
  20. SEROQUEL [Suspect]
     Dosage: 300MG, 100MG
     Route: 048
     Dates: start: 20071101
  21. SEROQUEL [Suspect]
     Dosage: 25-600 MG
     Route: 048
     Dates: start: 20080805
  22. SEROQUEL [Suspect]
     Dosage: 25-600 MG
     Route: 048
     Dates: start: 20080805
  23. SEROQUEL [Suspect]
     Dosage: 25-600 MG
     Route: 048
     Dates: start: 20080805
  24. SEROQUEL [Suspect]
     Dosage: 25-600 MG
     Route: 048
     Dates: start: 20080805
  25. CLONAZEPAM [Concomitant]
     Dosage: 1-4 MG
     Dates: start: 20030115
  26. CLONAZEPAM [Concomitant]
     Dates: start: 20080805
  27. OXYCODONE HCL [Concomitant]
     Dates: start: 20030117
  28. EFFEXOR XR [Concomitant]
     Dosage: 75-450 MG
     Route: 048
     Dates: start: 20030129
  29. EFFEXOR XR [Concomitant]
     Dosage: 75-300 MG
     Dates: start: 20050101
  30. EFFEXOR XR [Concomitant]
     Dates: start: 20071101
  31. DEPAKOTE [Concomitant]
     Dosage: 250-1500 MG
     Route: 048
     Dates: start: 20030201
  32. DEPAKOTE [Concomitant]
     Dosage: 750-1500 MG
     Dates: start: 20030101
  33. DEPAKOTE [Concomitant]
     Dates: start: 20071101
  34. DEPAKOTE [Concomitant]
     Dates: start: 20090906
  35. ACETAMINOPHEN AND HYDROCODONE BITARTRATE [Concomitant]
     Dosage: 5-500 MG
     Dates: start: 20030212
  36. ROXICET [Concomitant]
     Dosage: 5-325 MG
     Dates: start: 20030304
  37. SULFAMETHOXAZOLE AND TRIMETHOPRIM [Concomitant]
     Dosage: 800-160 MG
     Dates: start: 20030310
  38. CEFUROXIME [Concomitant]
     Dates: start: 20030409
  39. CYCLOBENZAPRINE HCL [Concomitant]
     Dates: start: 20030409
  40. XANAX [Concomitant]
     Dates: start: 20060509
  41. AVANDIA [Concomitant]
     Dates: start: 20060509
  42. TALWIN [Concomitant]
     Dates: start: 20060509
  43. AMARYL [Concomitant]
     Route: 048
     Dates: start: 20071018
  44. ENELAPRIL MALEATE [Concomitant]
     Dates: start: 20080818
  45. NEURONTIN [Concomitant]
  46. GEODON [Concomitant]

REACTIONS (5)
  - DIABETES MELLITUS [None]
  - DIABETES MELLITUS INADEQUATE CONTROL [None]
  - NEUROPATHY PERIPHERAL [None]
  - TYPE 2 DIABETES MELLITUS [None]
  - WEIGHT INCREASED [None]
